FAERS Safety Report 24604495 (Version 2)
Quarter: 2024Q4

REPORT INFORMATION
  Report Type: Spontaneous
  Country: GB (occurrence: GB)
  Receive Date: 20241111
  Receipt Date: 20241204
  Transmission Date: 20250115
  Serious: Yes (Disabling, Other)
  Sender: ELI LILLY AND COMPANY
  Company Number: None

PATIENT
  Age: 33 Year
  Sex: Female
  Weight: 58 kg

DRUGS (7)
  1. DULOXETINE HYDROCHLORIDE [Suspect]
     Active Substance: DULOXETINE HYDROCHLORIDE
     Indication: Panic disorder
     Dosage: 30 MG, UNKNOWN
     Route: 065
     Dates: end: 20241102
  2. DULOXETINE HYDROCHLORIDE [Suspect]
     Active Substance: DULOXETINE HYDROCHLORIDE
     Indication: Anxiety
  3. DULOXETINE HYDROCHLORIDE [Suspect]
     Active Substance: DULOXETINE HYDROCHLORIDE
     Indication: Depression
  4. DULOXETINE HYDROCHLORIDE [Suspect]
     Active Substance: DULOXETINE HYDROCHLORIDE
     Indication: Stress
  5. DULOXETINE [Concomitant]
     Active Substance: DULOXETINE
     Indication: Stress
     Dosage: 30 MG
     Route: 065
  6. DULOXETINE [Concomitant]
     Active Substance: DULOXETINE
     Indication: Panic disorder
  7. DULOXETINE [Concomitant]
     Active Substance: DULOXETINE
     Indication: Depressed mood

REACTIONS (3)
  - Incorrect dose administered [Unknown]
  - Nausea [Not Recovered/Not Resolved]
  - Decreased appetite [Unknown]
